FAERS Safety Report 19645263 (Version 2)
Quarter: 2021Q3

REPORT INFORMATION
  Report Type: Spontaneous
  Country: PT (occurrence: PT)
  Receive Date: 20210802
  Receipt Date: 20210811
  Transmission Date: 20211014
  Serious: Yes (Hospitalization)
  Sender: FDA-Public Use
  Company Number: PT-MACLEODS PHARMACEUTICALS US LTD-MAC2021032023

PATIENT

DRUGS (9)
  1. VALPROIC ACID. [Concomitant]
     Active Substance: VALPROIC ACID
     Indication: PSYCHOTIC SYMPTOM
     Dosage: 1000 MILLIGRAM, QD, TITRATED
     Route: 065
  2. ZIPRASIDONE 80 MG [Suspect]
     Active Substance: ZIPRASIDONE
     Indication: BIPOLAR DISORDER
  3. VALPROIC ACID. [Concomitant]
     Active Substance: VALPROIC ACID
     Indication: MANIA
  4. ARIPIPRAZOLE. [Suspect]
     Active Substance: ARIPIPRAZOLE
     Dosage: 30 MILLIGRAM, QD, TITRATED UP TO 30 MG PER DAY
     Route: 065
  5. ZIPRASIDONE 80 MG [Suspect]
     Active Substance: ZIPRASIDONE
     Indication: PSYCHOTIC SYMPTOM
     Dosage: 80 MILLIGRAM, QD, 2 DOSES AFTER LUNCH AND DINNER
     Route: 065
  6. ARIPIPRAZOLE. [Suspect]
     Active Substance: ARIPIPRAZOLE
     Indication: PSYCHOTIC SYMPTOM
     Dosage: UNK
     Route: 065
  7. DIAZEPAM. [Concomitant]
     Active Substance: DIAZEPAM
     Indication: PSYCHOTIC SYMPTOM
     Dosage: 20 MILLIGRAM, QD
     Route: 065
  8. VALPROIC ACID. [Concomitant]
     Active Substance: VALPROIC ACID
     Indication: BIPOLAR DISORDER
     Dosage: UNK
     Route: 065
  9. ZIPRASIDONE 80 MG [Suspect]
     Active Substance: ZIPRASIDONE
     Indication: MANIA

REACTIONS (3)
  - Toxic skin eruption [Recovered/Resolved]
  - Drug intolerance [Unknown]
  - Extrapyramidal disorder [Unknown]
